FAERS Safety Report 21933252 (Version 3)
Quarter: 2023Q2

REPORT INFORMATION
  Report Type: Report from Study
  Country: US (occurrence: US)
  Receive Date: 20230131
  Receipt Date: 20230403
  Transmission Date: 20230722
  Serious: Yes (Hospitalization, Other)
  Sender: FDA-Public Use
  Company Number: US-BIOVITRUM-2023US01341

PATIENT
  Age: 51 Year
  Sex: Female

DRUGS (1)
  1. KINERET [Suspect]
     Active Substance: ANAKINRA
     Indication: Autoinflammatory disease
     Dosage: DAILY
     Route: 058
     Dates: start: 20221129

REACTIONS (9)
  - Cardiac failure [Unknown]
  - Blood potassium abnormal [Unknown]
  - Off label use [Unknown]
  - Product dose omission issue [Unknown]
  - Kidney infection [Unknown]
  - Urinary retention [Unknown]
  - Nephrolithiasis [Unknown]
  - Sepsis [Unknown]
  - Renal failure [Unknown]

NARRATIVE: CASE EVENT DATE: 20221129
